FAERS Safety Report 8780102 (Version 1)
Quarter: 2012Q4

REPORT INFORMATION
  Report Type: Spontaneous
  Country: US (occurrence: None)
  Receive Date: 20120831
  Receipt Date: 20120831
  Transmission Date: 20130627
  Serious: Yes (Life-Threatening, Disabling)
  Sender: FDA-Public Use
  Company Number: None

PATIENT
  Sex: Female
  Weight: 52.16 kg

DRUGS (1)
  1. DILANTIN UNKNOWN [Suspect]
     Indication: SEIZURES
     Dosage: before 2009

REACTIONS (1)
  - Amyotrophic lateral sclerosis [None]
